FAERS Safety Report 12129969 (Version 1)
Quarter: 2016Q1

REPORT INFORMATION
  Report Type: Spontaneous
  Country: US (occurrence: None)
  Receive Date: 20160229
  Receipt Date: 20160229
  Transmission Date: 20160526
  Serious: No
  Sender: FDA-Public Use
  Company Number: None

PATIENT

DRUGS (3)
  1. SECRET INVISIBLE SOLID UNSCENTED [Suspect]
     Active Substance: ALUMINUM ZIRCONIUM TRICHLOROHYDREX GLY
     Indication: PROPHYLAXIS
  2. CREST COMPLETE MULTI-BENEFIT PLUS SCOPE [Suspect]
     Active Substance: SODIUM FLUORIDE
     Indication: DENTAL CARE
  3. SECRET INVISIBLE SOLID UNSCENTED [Suspect]
     Active Substance: ALUMINUM ZIRCONIUM TRICHLOROHYDREX GLY
     Indication: SKIN ODOUR ABNORMAL

REACTIONS (1)
  - Product container seal issue [None]

NARRATIVE: CASE EVENT DATE: 20160226
